FAERS Safety Report 6998706-3 (Version None)
Quarter: 2010Q3

REPORT INFORMATION
  Report Type: 
  Country: None (occurrence: None)
  Receive Date: 20100920
  Receipt Date: 20091117
  Transmission Date: 20110219
  Serious: Yes (Other)
  Sender: FDA-Public Use
  Company Number: US-ASTRAZENECA-2009UW03106

PATIENT
  Age: 42 Year
  Sex: Female
  Weight: 77.1 kg

DRUGS (9)
  1. SEROQUEL [Suspect]
     Indication: MENTAL DISORDER
     Dosage: 100 MG TO 1000 MG
     Route: 048
     Dates: start: 19980601, end: 20080901
  2. SEROQUEL [Suspect]
     Indication: BIPOLAR DISORDER
     Dosage: 100 MG TO 1000 MG
     Route: 048
     Dates: start: 19980601, end: 20080901
  3. ALLI [Concomitant]
  4. ABILIFY [Concomitant]
  5. CLOZARIL [Concomitant]
  6. GEODON [Concomitant]
  7. HALDOL [Concomitant]
  8. RISPERDAL [Concomitant]
  9. ZYPREXA [Concomitant]

REACTIONS (3)
  - BACK INJURY [None]
  - PANCREATITIS [None]
  - TYPE 2 DIABETES MELLITUS [None]
